FAERS Safety Report 10362620 (Version 2)
Quarter: 2014Q3

REPORT INFORMATION
  Report Type: Spontaneous
  Country: US (occurrence: US)
  Receive Date: 20140805
  Receipt Date: 20140813
  Transmission Date: 20150326
  Serious: Yes (Hospitalization)
  Sender: FDA-Public Use
  Company Number: US-ASPEN PHARMA TRADING LIMITED US-AG-2014-004919

PATIENT
  Age: 62 Year
  Sex: Female
  Weight: 59.02 kg

DRUGS (8)
  1. COUMADIN [Suspect]
     Active Substance: WARFARIN SODIUM
     Indication: CARDIAC VALVE PROSTHESIS USER
     Route: 048
     Dates: start: 201406
  2. LASIX [Concomitant]
     Active Substance: FUROSEMIDE
     Indication: PRODUCT USED FOR UNKNOWN INDICATION
     Route: 065
  3. ARIXTRA [Suspect]
     Active Substance: FONDAPARINUX SODIUM
     Indication: CARDIAC VALVE PROSTHESIS USER
     Route: 058
     Dates: end: 20140727
  4. 50+CENTRUM MULTIVITAMIN [Concomitant]
     Indication: PRODUCT USED FOR UNKNOWN INDICATION
     Route: 065
  5. COUMADIN [Suspect]
     Active Substance: WARFARIN SODIUM
     Dosage: ALTERNATING DAYS - 1.5 X 1.25MG TABLET
     Route: 048
  6. SYNTHROID [Concomitant]
     Active Substance: LEVOTHYROXINE SODIUM
     Indication: PRODUCT USED FOR UNKNOWN INDICATION
     Route: 065
  7. BIOTIN [Concomitant]
     Active Substance: BIOTIN
     Indication: PRODUCT USED FOR UNKNOWN INDICATION
     Route: 065
  8. COUMADIN [Suspect]
     Active Substance: WARFARIN SODIUM
     Dosage: ALTERNATING DAYS
     Route: 048

REACTIONS (4)
  - Off label use [Recovered/Resolved]
  - Bleeding time abnormal [Not Recovered/Not Resolved]
  - Joint injury [None]
  - Chest pain [Not Recovered/Not Resolved]
